FAERS Safety Report 25816109 (Version 1)
Quarter: 2025Q3

REPORT INFORMATION
  Report Type: Spontaneous
  Country: US (occurrence: US)
  Receive Date: 20250918
  Receipt Date: 20250918
  Transmission Date: 20251021
  Serious: No
  Sender: STRIDES
  Company Number: US-STRIDES ARCOLAB LIMITED-2025SP008535

PATIENT

DRUGS (2)
  1. POLYETHYLENE GLYCOL 3350 [Suspect]
     Active Substance: POLYETHYLENE GLYCOL 3350
     Indication: Liver disorder
     Route: 065
  2. LACTOSE [Concomitant]
     Active Substance: LACTOSE
     Indication: Liver disorder
     Route: 065

REACTIONS (1)
  - Off label use [Unknown]
